FAERS Safety Report 7948613-4 (Version None)
Quarter: 2011Q4

REPORT INFORMATION
  Report Type: 
  Country: None (occurrence: None)
  Receive Date: 20111130
  Receipt Date: 20111123
  Transmission Date: 20120403
  Serious: Yes (Other)
  Sender: FDA-Public Use
  Company Number: US-AMGEN-USASP2011061982

PATIENT
  Age: 13 Year
  Sex: Male

DRUGS (1)
  1. ENBREL [Suspect]
     Indication: JUVENILE ARTHRITIS
     Dosage: 50 MG, QWK
     Dates: start: 20110911, end: 20111113

REACTIONS (6)
  - CHEST PAIN [None]
  - NAUSEA [None]
  - VOMITING [None]
  - PLATELET COUNT DECREASED [None]
  - DECREASED APPETITE [None]
  - PALPITATIONS [None]
